FAERS Safety Report 11399823 (Version 1)
Quarter: 2015Q3

REPORT INFORMATION
  Report Type: Spontaneous
  Country: US (occurrence: None)
  Receive Date: 20150805
  Receipt Date: 20150805
  Transmission Date: 20151125
  Serious: Yes (Hospitalization)
  Sender: FDA-Public Use
  Company Number: GTI003201

PATIENT
  Age: 68 Year
  Sex: Female
  Weight: 72 kg

DRUGS (11)
  1. LEVOTHYROXINE. [Concomitant]
     Active Substance: LEVOTHYROXINE
  2. LISINOPRIL. [Concomitant]
     Active Substance: LISINOPRIL
  3. ATENOLOL. [Concomitant]
     Active Substance: ATENOLOL
  4. ROCEPHIN SULFA [Concomitant]
  5. AUGMENTIN [Concomitant]
     Active Substance: AMOXICILLIN\CLAVULANATE POTASSIUM
  6. CEFATRIN [Concomitant]
  7. OXYCONTIN [Concomitant]
     Active Substance: OXYCODONE HYDROCHLORIDE
  8. CEPHALEXIN. [Concomitant]
     Active Substance: CEPHALEXIN
  9. GAMUNEX-C [Suspect]
     Active Substance: HUMAN IMMUNOGLOBULIN G
     Indication: MYASTHENIA GRAVIS
     Route: 042
     Dates: start: 2012
  10. BABY ASPIRIN [Concomitant]
     Active Substance: ASPIRIN
  11. MULTIVITAMIN [Concomitant]
     Active Substance: VITAMINS

REACTIONS (4)
  - Pyrexia [None]
  - Meningitis aseptic [None]
  - Musculoskeletal stiffness [None]
  - Headache [None]

NARRATIVE: CASE EVENT DATE: 20150415
